FAERS Safety Report 13675967 (Version 1)
Quarter: 2017Q2

REPORT INFORMATION
  Report Type: Spontaneous
  Country: US (occurrence: US)
  Receive Date: 20170620
  Receipt Date: 20170620
  Transmission Date: 20170830
  Serious: Yes (Disabling)
  Sender: FDA-Public Use
  Company Number: None

PATIENT
  Age: 32 Year
  Sex: Female
  Weight: 56.25 kg

DRUGS (6)
  1. FISH OIL [Concomitant]
     Active Substance: FISH OIL
  2. EVENING PRIMROSE OIL [Concomitant]
     Active Substance: EVENING PRIMROSE OIL
  3. VITAMIN B COMPLEX [Concomitant]
     Active Substance: CYANOCOBALAMIN\DEXPANTHENOL\NIACINAMIDE\PYRIDOXINE HYDROCHLORIDE\RIBOFLAVIN 5^-PHOSPHATE SODIUM\THIAMINE HYDROCHLORIDE\VITAMIN B COMPLEX
  4. MULTIVITAMIN [Concomitant]
     Active Substance: VITAMINS
  5. LORATIDINE [Concomitant]
     Active Substance: LORATADINE
  6. MIRENA [Suspect]
     Active Substance: LEVONORGESTREL
     Indication: CONTRACEPTION
     Dosage: INTRAUTERINE?
     Dates: start: 20150817, end: 20170524

REACTIONS (8)
  - Dislocation of vertebra [None]
  - Arthralgia [None]
  - Amenorrhoea [None]
  - Gait disturbance [None]
  - Sciatica [None]
  - Abasia [None]
  - Back pain [None]
  - Asthenia [None]

NARRATIVE: CASE EVENT DATE: 20151101
